FAERS Safety Report 8550004-2 (Version None)
Quarter: 2012Q3

REPORT INFORMATION
  Report Type: 
  Country: None (occurrence: None)
  Receive Date: 20120730
  Receipt Date: 20120723
  Transmission Date: 20120928
  Serious: Yes (Other)
  Sender: FDA-Public Use
  Company Number: JP-B.I. PHARMACEUTICALS,INC./RIDGEFIELD-2012-BP-13529NB

PATIENT
  Sex: Male
  Weight: 60 kg

DRUGS (8)
  1. ATELEC [Concomitant]
     Dosage: 10 MG
     Route: 048
     Dates: start: 20120306, end: 20120511
  2. SENNOSIDE [Concomitant]
     Dosage: 24 MG
     Route: 048
     Dates: end: 20120413
  3. MUCOSTA [Concomitant]
     Dosage: 300 MG
     Route: 048
  4. TANATRIL [Concomitant]
     Dosage: 5 MG
     Route: 048
     Dates: start: 20120306
  5. PRADAXA [Suspect]
     Indication: THROMBOSIS PROPHYLAXIS
     Dosage: 220 MG
     Route: 048
     Dates: start: 20120306
  6. RIVASTACH [Concomitant]
     Dosage: 18 MG
     Route: 062
  7. LASIX [Concomitant]
     Dosage: 20 MG
     Route: 048
     Dates: end: 20120425
  8. MAGLAX [Concomitant]
     Dosage: 990 MG
     Route: 048

REACTIONS (1)
  - CLONIC CONVULSION [None]
